FAERS Safety Report 16464162 (Version 1)
Quarter: 2019Q2

REPORT INFORMATION
  Report Type: Spontaneous
  Country: US (occurrence: US)
  Receive Date: 20190621
  Receipt Date: 20190621
  Transmission Date: 20190711
  Serious: No
  Sender: FDA-Public Use
  Company Number: US-GLAXOSMITHKLINE-US2019106791

PATIENT
  Age: 79 Year
  Sex: Female

DRUGS (2)
  1. VOLTAREN [Suspect]
     Active Substance: DICLOFENAC SODIUM
     Indication: OSTEOARTHRITIS
     Dosage: APPLYING FOUR TIMES DAILY, PRN
     Dates: start: 201501, end: 201601
  2. HYALURONIC ACID [Suspect]
     Active Substance: HYALURONIC ACID
     Indication: ARTHRALGIA
     Dosage: UNK
     Dates: start: 201505, end: 201506

REACTIONS (4)
  - Inappropriate schedule of product administration [Unknown]
  - Aspartate aminotransferase increased [Recovered/Resolved]
  - Drug ineffective [Unknown]
  - Alanine aminotransferase increased [Recovered/Resolved]
